FAERS Safety Report 4700398-0 (Version None)
Quarter: 2005Q2

REPORT INFORMATION
  Report Type: 
  Country: None (occurrence: None)
  Receive Date: 20050209
  Receipt Date: 20050209
  Transmission Date: 20051028
  Serious: No
  Sender: FDA-Public Use
  Company Number: None

PATIENT
  Age: 53 Year
  Sex: Female
  Weight: 84.8226 kg

DRUGS (1)
  1. MS CONTIN [Suspect]
     Indication: PAIN
     Dosage: 15MG ONE TAB Q 8 HRS

REACTIONS (2)
  - INADEQUATE ANALGESIA [None]
  - THERAPEUTIC RESPONSE UNEXPECTED WITH DRUG SUBSTITUTION [None]
